FAERS Safety Report 19634885 (Version 1)
Quarter: 2021Q3

REPORT INFORMATION
  Report Type: Spontaneous
  Country: US (occurrence: US)
  Receive Date: 20210730
  Receipt Date: 20210730
  Transmission Date: 20211014
  Serious: Yes (Hospitalization)
  Sender: FDA-Public Use
  Company Number: None

PATIENT
  Age: 57 Year
  Sex: Female

DRUGS (7)
  1. SUTENT [Suspect]
     Active Substance: SUNITINIB MALATE
     Indication: GASTRIC DISORDER
     Route: 048
  2. CITALOPRAM TAB 20 MG [Concomitant]
     Dates: start: 20210621
  3. CITALOPRAM TAB 20MG [Concomitant]
     Dates: start: 20210719
  4. METOCLOPRAM TAB 10MG [Concomitant]
     Dates: start: 20210718
  5. ALPRAZOLAM TAB 0.5MG [Concomitant]
     Dates: start: 20210719
  6. FOLIC ACID TAB 1MG [Concomitant]
     Dates: start: 20210427
  7. TEMAZEPAM CAP 30MH [Concomitant]
     Dates: start: 20210610

REACTIONS (3)
  - Gastric disorder [None]
  - Pain in extremity [None]
  - Disease recurrence [None]

NARRATIVE: CASE EVENT DATE: 20210722
